FAERS Safety Report 4651050-1 (Version None)
Quarter: 2005Q2

REPORT INFORMATION
  Report Type: 
  Country: None (occurrence: None)
  Receive Date: 20050429
  Receipt Date: 20050418
  Transmission Date: 20051028
  Serious: Yes (Hospitalization, Other)
  Sender: FDA-Public Use
  Company Number: 2005061417

PATIENT
  Age: 42 Year
  Sex: Female
  Weight: 83.9154 kg

DRUGS (7)
  1. BEXTRA [Suspect]
     Indication: RHEUMATOID ARTHRITIS
     Dosage: 10 MG (10 MG, 1 IN 1 D), ORAL
     Route: 048
     Dates: start: 20031101
  2. OXYCODONE HCL [Concomitant]
  3. PROMETHAZINE [Concomitant]
  4. ALPRAZOLAM [Concomitant]
  5. VALPROATE SODIUM [Concomitant]
  6. VENLAFAXINE HCL [Concomitant]
  7. SALBUTAMOL (SALBUTAMOL) [Concomitant]

REACTIONS (5)
  - MALIGNANT MELANOMA [None]
  - PIGMENTED NAEVUS [None]
  - PNEUMONIA [None]
  - SKIN EXFOLIATION [None]
  - SUNBURN [None]
